FAERS Safety Report 11553292 (Version 1)
Quarter: 2015Q3

REPORT INFORMATION
  Report Type: Other
  Country: GB (occurrence: GB)
  Receive Date: 20150925
  Receipt Date: 20150925
  Transmission Date: 20151125
  Serious: Yes (Other)
  Sender: FDA-Public Use
  Company Number: GB-SHIRE-GB201511931

PATIENT
  Sex: Male

DRUGS (2)
  1. EPILIM [Concomitant]
     Active Substance: VALPROATE SODIUM
     Indication: PRODUCT USED FOR UNKNOWN INDICATION
     Dosage: UNK, UNKNOWN
     Route: 065
  2. ELAPRASE [Suspect]
     Active Substance: IDURSULFASE
     Indication: MUCOPOLYSACCHARIDOSIS II
     Dosage: 36 MG (6 VIALS), 1X/WEEK
     Route: 041
     Dates: start: 20140224

REACTIONS (2)
  - Petit mal epilepsy [Recovered/Resolved]
  - Facial spasm [Unknown]

NARRATIVE: CASE EVENT DATE: 2015
